FAERS Safety Report 5158527-3 (Version None)
Quarter: 2006Q4

REPORT INFORMATION
  Report Type: 
  Country: None (occurrence: None)
  Receive Date: 20061117
  Receipt Date: 20061107
  Transmission Date: 20070319
  Serious: Yes (Other)
  Sender: FDA-Public Use
  Company Number: HQWYE934109NOV06

PATIENT
  Age: 73 Year
  Sex: Female

DRUGS (13)
  1. MYLOTARG [Suspect]
     Indication: ACUTE MYELOID LEUKAEMIA RECURRENT
     Dosage: 9 MG/M^2 1X PER 1 DAY
     Route: 041
     Dates: start: 20060922, end: 20060922
  2. MYLOTARG [Suspect]
     Indication: ACUTE MYELOID LEUKAEMIA RECURRENT
     Dosage: 9 MG/M^2 1X PER 1 DAY
     Route: 041
     Dates: start: 20061011, end: 20061011
  3. LIVALO (PITAVASTATIN CALCIUM) [Concomitant]
  4. ENALAPRIL MALEATE [Concomitant]
  5. ADALAT OR (NIFEDIPINE) [Concomitant]
  6. METHYCOBAL (MECOBALAMIN) [Concomitant]
  7. ASPARA K (ASPARTATE POTASSIUM) [Concomitant]
  8. MUCOSOLVAN (AMBROXOL HYDROCHLORIDE) [Concomitant]
  9. LEVOFLOXACIN [Concomitant]
  10. DIFLUCAN [Concomitant]
  11. FUNGUARD (MICAFUNGIN SODIUM) [Concomitant]
  12. FOY (GABEXATE MESILATE) [Concomitant]
  13. POTASSIUM CHLORIDE [Concomitant]

REACTIONS (9)
  - BLOOD CREATININE INCREASED [None]
  - BLOOD UREA INCREASED [None]
  - CONDITION AGGRAVATED [None]
  - DISEASE PROGRESSION [None]
  - DISSEMINATED INTRAVASCULAR COAGULATION [None]
  - FEBRILE NEUTROPENIA [None]
  - HYPERURICAEMIA [None]
  - HYPOKALAEMIA [None]
  - WHITE BLOOD CELL COUNT DECREASED [None]
